FAERS Safety Report 8547491-2 (Version None)
Quarter: 2012Q3

REPORT INFORMATION
  Report Type: 
  Country: None (occurrence: None)
  Receive Date: 20120727
  Receipt Date: 20120717
  Transmission Date: 20120928
  Serious: No
  Sender: FDA-Public Use
  Company Number: US-ASTRAZENECA-2009UW08263

PATIENT
  Age: 38 Year
  Sex: Male

DRUGS (2)
  1. NEXIUM [Suspect]
     Route: 048
     Dates: start: 20070401
  2. NEXIUM [Suspect]
     Route: 048
     Dates: start: 20070401

REACTIONS (10)
  - ASTHENIA [None]
  - FATIGUE [None]
  - ARTHRALGIA [None]
  - MUSCULOSKELETAL PAIN [None]
  - DEPRESSION [None]
  - GASTROOESOPHAGEAL REFLUX DISEASE [None]
  - MYALGIA [None]
  - ABDOMINAL DISTENSION [None]
  - INSOMNIA [None]
  - INTENTIONAL DRUG MISUSE [None]
